FAERS Safety Report 23845241 (Version 4)
Quarter: 2024Q2

REPORT INFORMATION
  Report Type: Report from Study
  Country: CA (occurrence: CA)
  Receive Date: 20240511
  Receipt Date: 20240622
  Transmission Date: 20240716
  Serious: Yes (Other)
  Sender: FDA-Public Use
  Company Number: CA-AMGEN-CANSL2024048115

PATIENT
  Age: 59 Year
  Sex: Female
  Weight: 59 kg

DRUGS (21)
  1. MVASI [Suspect]
     Active Substance: BEVACIZUMAB-AWWB
     Indication: Glioblastoma
     Dosage: 590 MILLIGRAM
     Route: 042
     Dates: start: 20240207
  2. MVASI [Suspect]
     Active Substance: BEVACIZUMAB-AWWB
     Dosage: 590 MILLIGRAM
     Route: 042
  3. MVASI [Suspect]
     Active Substance: BEVACIZUMAB-AWWB
     Dosage: 620 MILLIGRAM, Q2WK
     Route: 042
  4. MVASI [Suspect]
     Active Substance: BEVACIZUMAB-AWWB
     Dosage: 610 MILLIGRAM (10 MG/KG), Q2WK
     Route: 042
  5. MVASI [Suspect]
     Active Substance: BEVACIZUMAB-AWWB
     Dosage: 610 MILLIGRAM (10 MG/KG), Q2WK
     Route: 042
  6. MVASI [Suspect]
     Active Substance: BEVACIZUMAB-AWWB
     Dosage: 610 MILLIGRAM
     Route: 042
  7. MVASI [Suspect]
     Active Substance: BEVACIZUMAB-AWWB
     Dosage: 610 MILLIGRAM, Q2WK
     Route: 065
  8. MVASI [Suspect]
     Active Substance: BEVACIZUMAB-AWWB
     Dosage: 590 MILLIGRAM, Q2WK (10 MG/KG)
     Route: 065
  9. DEXAMETHASONE [Concomitant]
     Active Substance: DEXAMETHASONE
     Dosage: UNK
     Route: 065
  10. TYLENOL [Concomitant]
     Active Substance: ACETAMINOPHEN
     Dosage: 325-650 MG, AS NECESSARY, EVERY 4 -6 HOURS
     Route: 048
  11. GRAVOL [Concomitant]
     Active Substance: DIMENHYDRINATE
     Dosage: 25-50 MG, Q4H, PRN
     Route: 048
  12. GRAVOL [Concomitant]
     Active Substance: DIMENHYDRINATE
     Dosage: 25-50 MG, Q4H, PRN
     Route: 042
  13. BENADRYL [Concomitant]
     Active Substance: DIPHENHYDRAMINE HYDROCHLORIDE
     Dosage: 25-50 MG, PRN, EVERY 4-6 HOURS
     Route: 048
  14. BENADRYL [Concomitant]
     Active Substance: DIPHENHYDRAMINE HYDROCHLORIDE
     Dosage: 25-50 MG, PRN, EVERY 4-6 HOURS
     Route: 042
  15. BENADRYL [Concomitant]
     Active Substance: DIPHENHYDRAMINE HYDROCHLORIDE
     Dosage: 25-50 MG, PRN, EVERY 4-6 HOURS
     Route: 030
  16. EPINEPHRINE [Concomitant]
     Active Substance: EPINEPHRINE
     Dosage: 0.001 MILLIGRAM/KILOGRAM (MAX 0.5 ML), PRN, EVERY 10-15 MINUTESX2
     Route: 058
  17. EPINEPHRINE [Concomitant]
     Active Substance: EPINEPHRINE
     Dosage: 0.001 MILLIGRAM/KILOGRAM (MAX 0.5 ML), PRN, EVERY 10-15 MINUTESX2
     Route: 030
  18. SOLU-CORTEF [Concomitant]
     Active Substance: HYDROCORTISONE SODIUM SUCCINATE
     Dosage: 100 MILLIGRAM, AS NECESSARY
     Route: 042
  19. OXYGEN [Concomitant]
     Active Substance: OXYGEN
     Dosage: 5-8 L/MIN VIA MASK/NASAL PRONGS PRN, AS NECESSARY
  20. VENTOLIN [Concomitant]
     Active Substance: ALBUTEROL SULFATE
     Dosage: UNK,UNK, 2 PUFFS EVERY 4-6  HOURS VIA AEROCHAMBER PRN, AS NECESSARY
  21. ATROVENT [Concomitant]
     Active Substance: IPRATROPIUM BROMIDE
     Dosage: UNK UNK, 1-4 PUFFS  EVERY 6-8 HOURS VIA  AEROCHAMBER, PRN, AS NECESSARY

REACTIONS (7)
  - Dyspnoea at rest [Not Recovered/Not Resolved]
  - Hypoaesthesia [Not Recovered/Not Resolved]
  - Constipation [Unknown]
  - Fatigue [Unknown]
  - Urinary tract infection [Not Recovered/Not Resolved]
  - Muscular weakness [Unknown]
  - Ligament sprain [Unknown]

NARRATIVE: CASE EVENT DATE: 20240207
